FAERS Safety Report 25649370 (Version 1)
Quarter: 2025Q3

REPORT INFORMATION
  Report Type: Spontaneous
  Country: GB (occurrence: GB)
  Receive Date: 20250806
  Receipt Date: 20250806
  Transmission Date: 20251021
  Serious: Yes (Other)
  Sender: ENDO
  Company Number: GB-ENDO USA, INC.-2025-001704

PATIENT
  Age: 3 Decade
  Sex: Female

DRUGS (1)
  1. KETALAR [Suspect]
     Active Substance: KETAMINE HYDROCHLORIDE
     Indication: Product used for unknown indication
     Route: 065

REACTIONS (4)
  - Bladder transitional cell carcinoma [Recovered/Resolved]
  - Cholecystectomy [Recovered/Resolved]
  - Cystitis [Unknown]
  - Drug abuse [Unknown]
